FAERS Safety Report 16594795 (Version 2)
Quarter: 2019Q3

REPORT INFORMATION
  Report Type: Report from Study
  Country: FR (occurrence: FR)
  Receive Date: 20190718
  Receipt Date: 20190723
  Transmission Date: 20191004
  Serious: Yes (Death, Other)
  Sender: FDA-Public Use
  Company Number: FR-TAKEDA-2019TUS043845

PATIENT
  Sex: Male
  Weight: 107 kg

DRUGS (4)
  1. ENDOXAN                            /00021101/ [Suspect]
     Active Substance: CYCLOPHOSPHAMIDE
     Indication: PRODUCT USED FOR UNKNOWN INDICATION
     Dosage: UNK
     Route: 065
     Dates: start: 20180528
  2. IXAZOMIB [Suspect]
     Active Substance: IXAZOMIB
     Indication: PLASMA CELL MYELOMA
     Dosage: 4 MILLIGRAM
     Route: 048
     Dates: start: 20180131, end: 20180410
  3. NEOFORDEX [Suspect]
     Active Substance: DEXAMETHASONE ACETATE
     Indication: PLASMA CELL MYELOMA
     Dosage: 20 MILLIGRAM
     Route: 048
     Dates: start: 20171220, end: 20180410
  4. REVLIMID [Suspect]
     Active Substance: LENALIDOMIDE
     Indication: PLASMA CELL MYELOMA
     Dosage: 15 MILLIGRAM
     Route: 048
     Dates: start: 20171220, end: 20180410

REACTIONS (13)
  - Asthenia [Unknown]
  - Plasma cell myeloma recurrent [Fatal]
  - Pancytopenia [Unknown]
  - Haematotoxicity [Recovering/Resolving]
  - Petechiae [Unknown]
  - General physical health deterioration [Fatal]
  - Coma [Unknown]
  - Agitation [Unknown]
  - Ecchymosis [Unknown]
  - Hyperproteinaemia [Unknown]
  - Confusional state [Unknown]
  - Somnolence [Unknown]
  - Conjunctival pallor [Unknown]

NARRATIVE: CASE EVENT DATE: 20180403
